FAERS Safety Report 10175313 (Version 2)
Quarter: 2014Q2

REPORT INFORMATION
  Report Type: Report from Study
  Country: US (occurrence: US)
  Receive Date: 20140515
  Receipt Date: 20140528
  Transmission Date: 20141212
  Serious: Yes (Hospitalization)
  Sender: FDA-Public Use
  Company Number: US-ACTELION-A-NJ2014-98807

PATIENT
  Age: 75 Year
  Sex: Male

DRUGS (3)
  1. MACITENTAN [Suspect]
     Indication: PULMONARY HYPERTENSION
     Dosage: 10 MG, UNK
     Route: 048
     Dates: start: 20131223
  2. ADCIRCA [Concomitant]
     Dosage: 40 MG, QD
     Dates: start: 20140117
  3. WARFARIN [Concomitant]
     Dosage: 2.5 MG, QD
     Dates: start: 20131223

REACTIONS (2)
  - Bladder cancer [Not Recovered/Not Resolved]
  - Radical cystectomy [Not Recovered/Not Resolved]
